FAERS Safety Report 11616661 (Version 2)
Quarter: 2015Q4

REPORT INFORMATION
  Report Type: Report from Study
  Country: DE (occurrence: DE)
  Receive Date: 20151009
  Receipt Date: 20151012
  Transmission Date: 20160304
  Serious: Yes (Hospitalization, Other)
  Sender: FDA-Public Use
  Company Number: PHHO2015DE014962

PATIENT
  Age: 50 Year
  Sex: Female
  Weight: 100 kg

DRUGS (1)
  1. FTY [Suspect]
     Active Substance: FINGOLIMOD HYDROCHLORIDE
     Indication: RELAPSING-REMITTING MULTIPLE SCLEROSIS
     Dosage: 0.5 MG, QD
     Route: 048
     Dates: start: 20150924, end: 20151001

REACTIONS (1)
  - Muscle spasms [Recovering/Resolving]

NARRATIVE: CASE EVENT DATE: 20150929
